FAERS Safety Report 25265085 (Version 1)
Quarter: 2025Q2

REPORT INFORMATION
  Report Type: Spontaneous
  Country: CA (occurrence: CA)
  Receive Date: 20250502
  Receipt Date: 20250502
  Transmission Date: 20250717
  Serious: Yes (Life-Threatening, Hospitalization, Other)
  Sender: PFIZER
  Company Number: CA-PFIZER INC-202500091169

PATIENT
  Age: 5 Month
  Sex: Female
  Weight: 6 kg

DRUGS (5)
  1. VINCRISTINE SULFATE [Suspect]
     Active Substance: VINCRISTINE SULFATE
     Indication: Chemotherapy
     Dosage: 0.12 MG, 1X/DAY
     Route: 042
  2. CYCLOPHOSPHAMIDE [Suspect]
     Active Substance: CYCLOPHOSPHAMIDE
     Indication: Chemotherapy
     Route: 042
  3. DOXORUBICIN HYDROCHLORIDE [Suspect]
     Active Substance: DOXORUBICIN HYDROCHLORIDE
     Indication: Chemotherapy
     Dosage: 6 MG, 1X/DAY
     Route: 042
  4. DEXRAZOXANE [Concomitant]
     Active Substance: DEXRAZOXANE
  5. MESNA [Concomitant]
     Active Substance: MESNA

REACTIONS (1)
  - Bone marrow failure [Recovered/Resolved]
